FAERS Safety Report 16245836 (Version 1)
Quarter: 2019Q2

REPORT INFORMATION
  Report Type: Spontaneous
  Country: US (occurrence: US)
  Receive Date: 20190426
  Receipt Date: 20190426
  Transmission Date: 20190711
  Serious: Yes (Other)
  Sender: FDA-Public Use
  Company Number: US-TEVA-2019-US-1044489

PATIENT
  Age: 54 Year
  Sex: Female

DRUGS (5)
  1. DULOXETINE. [Interacting]
     Active Substance: DULOXETINE
     Route: 065
  2. HYDROCODONE/PARACETAMOL [Suspect]
     Active Substance: ACETAMINOPHEN\HYDROCODONE BITARTRATE
     Dosage: HYDROCODONE7.5 MG/PARACETAMOL 325 MG, ONE TABLET EVERY 6 HOURS AS NEEDED
     Route: 065
  3. TIZANIDINE. [Concomitant]
     Active Substance: TIZANIDINE
     Route: 065
  4. DIAZEPAM. [Interacting]
     Active Substance: DIAZEPAM
     Route: 065
  5. GABAPENTIN. [Concomitant]
     Active Substance: GABAPENTIN
     Route: 065

REACTIONS (3)
  - Drug abuse [Unknown]
  - Drug level increased [Unknown]
  - Drug interaction [Unknown]
